FAERS Safety Report 7144976-0 (Version None)
Quarter: 2010Q4

REPORT INFORMATION
  Report Type: 
  Country: None (occurrence: None)
  Receive Date: 20101208
  Receipt Date: 20101130
  Transmission Date: 20110411
  Serious: Yes (Other)
  Sender: FDA-Public Use
  Company Number: US-JNJFOC-20101200895

PATIENT
  Sex: Female
  Weight: 113.4 kg

DRUGS (6)
  1. REMICADE [Suspect]
     Indication: PSORIATIC ARTHROPATHY
     Route: 042
  2. MORPHINE [Concomitant]
     Indication: PAIN
     Route: 048
  3. RITALIN [Concomitant]
     Indication: ATTENTION DEFICIT/HYPERACTIVITY DISORDER
     Route: 048
  4. SEROQUEL [Concomitant]
     Indication: DEPRESSION
     Route: 048
  5. KLONOPIN [Concomitant]
     Indication: ANXIETY
     Route: 048
  6. SYNTHROID [Concomitant]
     Indication: HYPOTHYROIDISM
     Route: 048

REACTIONS (1)
  - MENISCUS LESION [None]
